FAERS Safety Report 7376225-2 (Version None)
Quarter: 2011Q1

REPORT INFORMATION
  Report Type: 
  Country: None (occurrence: None)
  Receive Date: 20110325
  Receipt Date: 20110314
  Transmission Date: 20110831
  Serious: Yes (Hospitalization)
  Sender: FDA-Public Use
  Company Number: BE-CELGENEUS-013-21880-11031586

PATIENT
  Age: 78 Year
  Sex: Female

DRUGS (11)
  1. REVLIMID [Suspect]
     Dosage: 10 MILLIGRAM
     Route: 048
     Dates: start: 20110220
  2. LISINOPRIL [Concomitant]
     Route: 065
  3. PYRIDOXINE [Concomitant]
     Route: 065
  4. ZOLPIDEM TARTRATE [Concomitant]
     Route: 065
  5. DUOVENT [Concomitant]
     Dosage: 50 MICROGRAM AND 20 MCROGRAM
     Route: 065
  6. TORREM [Concomitant]
     Route: 065
  7. LIPANTHYL [Concomitant]
     Route: 065
  8. FOLAVIT [Concomitant]
     Route: 065
  9. TEMAZEPAM [Concomitant]
     Route: 065
  10. RANITIDINE [Concomitant]
     Route: 065
  11. EMCONCOR [Concomitant]
     Route: 065

REACTIONS (2)
  - ELECTROCARDIOGRAM QT PROLONGED [None]
  - CARDIAC FAILURE [None]
